FAERS Safety Report 26005877 (Version 1)
Quarter: 2025Q4

REPORT INFORMATION
  Report Type: Spontaneous
  Country: EU (occurrence: EU)
  Receive Date: 20251106
  Receipt Date: 20251106
  Transmission Date: 20260117
  Serious: Yes (Hospitalization, Other)
  Sender: DAIICHI
  Company Number: EU-DSJP-DS-2025-173419-RO

PATIENT
  Age: 54 Year
  Sex: Male

DRUGS (1)
  1. TRASTUZUMAB DERUXTECAN [Suspect]
     Active Substance: TRASTUZUMAB DERUXTECAN
     Indication: HER2 positive gastric cancer
     Dosage: UNK
     Route: 065
     Dates: start: 2025

REACTIONS (4)
  - Post procedural pneumonia [Recovering/Resolving]
  - Cardiotoxicity [Unknown]
  - Pneumonitis [Recovering/Resolving]
  - Febrile neutropenia [Recovering/Resolving]
